FAERS Safety Report 7204899-5 (Version None)
Quarter: 2010Q4

REPORT INFORMATION
  Report Type: 
  Country: None (occurrence: None)
  Receive Date: 20101230
  Receipt Date: 20101222
  Transmission Date: 20110411
  Serious: Yes (Other)
  Sender: FDA-Public Use
  Company Number: CA-JNJFOC-20101208492

PATIENT
  Sex: Female
  Weight: 70 kg

DRUGS (2)
  1. REMICADE [Suspect]
     Indication: CROHN'S DISEASE
     Route: 042
  2. REMICADE [Suspect]
     Route: 042

REACTIONS (6)
  - BLOOD PRESSURE INCREASED [None]
  - GASTROINTESTINAL INFLAMMATION [None]
  - INFUSION RELATED REACTION [None]
  - KIDNEY INFECTION [None]
  - PNEUMONIA [None]
  - SYNCOPE [None]
